FAERS Safety Report 8903308 (Version 2)
Quarter: 2012Q4

REPORT INFORMATION
  Report Type: 
  Country: FR (occurrence: FR)
  Receive Date: 20121112
  Receipt Date: 20121212
  Transmission Date: 20130627
  Serious: Yes (Death, Hospitalization, Other)
  Sender: FDA-Public Use
  Company Number: FR-AMGEN-FRASP2012071194

PATIENT
  Age: 72 Year
  Sex: Male

DRUGS (5)
  1. NEULASTA [Suspect]
     Indication: CHEMOTHERAPY
     Dosage: UNK
     Route: 058
     Dates: start: 20120314, end: 20120314
  2. CISPLATIN [Concomitant]
     Indication: LUNG ADENOCARCINOMA
     Dosage: 150 mg, UNK
     Dates: start: 20120221
  3. CISPLATIN [Concomitant]
     Dosage: 145 mg, UNK
     Dates: start: 20120313
  4. ALIMTA [Concomitant]
     Indication: LUNG ADENOCARCINOMA
     Dosage: 100 mg, UNK
     Route: 042
     Dates: start: 20120221
  5. ALIMTA [Concomitant]
     Dosage: 800 mg, UNK
     Route: 042
     Dates: start: 20120313

REACTIONS (10)
  - Lung adenocarcinoma [Fatal]
  - Metastases to bone [Fatal]
  - Nephrotic syndrome [Recovering/Resolving]
  - Proteinuria [Unknown]
  - Hypoalbuminaemia [Unknown]
  - Sepsis [Unknown]
  - Dehydration [Unknown]
  - Gastroenteritis radiation [Unknown]
  - Renal failure acute [Unknown]
  - Pancytopenia [Unknown]
